FAERS Safety Report 15987896 (Version 6)
Quarter: 2019Q2

REPORT INFORMATION
  Report Type: Spontaneous
  Country: NL (occurrence: NL)
  Receive Date: 20190220
  Receipt Date: 20190624
  Transmission Date: 20190711
  Serious: Yes (Death, Other)
  Sender: FDA-Public Use
  Company Number: NL-WHANIN PHARM. CO., LTD.-2019M1016852

PATIENT
  Age: 29 Year
  Sex: Female

DRUGS (3)
  1. CLOZAPINE. [Suspect]
     Active Substance: CLOZAPINE
     Indication: SCHIZOPHRENIA
     Dosage: UNK
  2. CLOZAPINE. [Suspect]
     Active Substance: CLOZAPINE
     Dosage: UNK
  3. CLOZAPINE. [Suspect]
     Active Substance: CLOZAPINE
     Dosage: UNK

REACTIONS (6)
  - Antipsychotic drug level increased [Not Recovered/Not Resolved]
  - Cardiac arrest [Fatal]
  - Drug hypersensitivity [Fatal]
  - Pericarditis [Fatal]
  - Gastroenteritis [Fatal]
  - Myocarditis [Fatal]

NARRATIVE: CASE EVENT DATE: 2013
